FAERS Safety Report 8991256 (Version 2)
Quarter: 2013Q1

REPORT INFORMATION
  Report Type: Report from Study
  Country: CA (occurrence: CA)
  Receive Date: 20121231
  Receipt Date: 20130206
  Transmission Date: 20140127
  Serious: Yes (Other)
  Sender: FDA-Public Use
  Company Number: CA-ROCHE-1173570

PATIENT
  Sex: Male
  Weight: 95.11 kg

DRUGS (9)
  1. OMALIZUMAB [Suspect]
     Indication: ASTHMA
     Route: 058
     Dates: start: 20070927
  2. OMALIZUMAB [Suspect]
     Route: 058
     Dates: start: 20090925
  3. OMALIZUMAB [Suspect]
     Route: 058
     Dates: start: 20091218, end: 20100604
  4. PREDNISONE [Concomitant]
     Indication: PRODUCT USED FOR UNKNOWN INDICATION
     Route: 065
  5. PREDNISONE [Concomitant]
     Route: 065
  6. PREDNISONE [Concomitant]
     Route: 065
  7. PREDNISONE [Concomitant]
     Route: 065
  8. PREDNISONE [Concomitant]
     Route: 065
  9. CORTISONE [Concomitant]
     Route: 065

REACTIONS (9)
  - H1N1 influenza [Unknown]
  - Increased bronchial secretion [Unknown]
  - Respiratory tract congestion [Unknown]
  - Sinus headache [Unknown]
  - Upper-airway cough syndrome [Unknown]
  - Sinusitis [Unknown]
  - Sinus congestion [Unknown]
  - Malaise [Unknown]
  - Drug ineffective [Unknown]
